FAERS Safety Report 4647283-0 (Version None)
Quarter: 2005Q2

REPORT INFORMATION
  Report Type: 
  Country: None (occurrence: None)
  Receive Date: 20050425
  Receipt Date: 20050425
  Transmission Date: 20051028
  Serious: Yes (Other)
  Sender: FDA-Public Use
  Company Number: None

PATIENT
  Age: 42 Year
  Sex: Female
  Weight: 83.9154 kg

DRUGS (1)
  1. CELEXA [Suspect]
     Indication: PANIC ATTACK
     Dosage: 20MG  ONCE A DAY  ORAL
     Route: 048
     Dates: start: 20050220, end: 20050422

REACTIONS (6)
  - ABNORMAL BEHAVIOUR [None]
  - CARDIAC DISORDER [None]
  - FEELING ABNORMAL [None]
  - MORBID THOUGHTS [None]
  - PARANOIA [None]
  - SLEEP DISORDER [None]
